FAERS Safety Report 15065845 (Version 2)
Quarter: 2018Q4

REPORT INFORMATION
  Report Type: Spontaneous
  Country: US (occurrence: US)
  Receive Date: 20180626
  Receipt Date: 20181020
  Transmission Date: 20190204
  Serious: Yes (Other)
  Sender: FDA-Public Use
  Company Number: US-SUN PHARMACEUTICAL INDUSTRIES LTD-2018US-176538

PATIENT
  Age: 39 Year
  Sex: Male

DRUGS (6)
  1. HYDROMORPHONE [Suspect]
     Active Substance: HYDROMORPHONE
     Dosage: 0.1 MG, DAILY
     Route: 037
     Dates: start: 200607, end: 201702
  2. BUPIVACAINE. [Suspect]
     Active Substance: BUPIVACAINE
     Dosage: 0.013 MG, DAILY
     Route: 037
     Dates: end: 201702
  3. HYDROMORPHONE [Suspect]
     Active Substance: HYDROMORPHONE
     Indication: BACK PAIN
     Dosage: 24.506 MG, DAILY
     Route: 037
  4. BACLOFEN. [Suspect]
     Active Substance: BACLOFEN
     Indication: BACK PAIN
     Dosage: 447.4 ?G, DAILY
     Route: 037
     Dates: start: 200607
  5. BACLOFEN. [Suspect]
     Active Substance: BACLOFEN
     Dosage: 1.8 ?G, DAILY
     Route: 037
     Dates: end: 201702
  6. BUPIVACAINE. [Suspect]
     Active Substance: BUPIVACAINE
     Indication: BACK PAIN
     Dosage: 3.343 MG, DAILY
     Route: 037
     Dates: start: 200607

REACTIONS (1)
  - Arachnoiditis [Unknown]
